FAERS Safety Report 10263613 (Version 1)
Quarter: 2014Q2

REPORT INFORMATION
  Report Type: Spontaneous
  Country: US (occurrence: US)
  Receive Date: 20140626
  Receipt Date: 20140626
  Transmission Date: 20141212
  Serious: No
  Sender: FDA-Public Use
  Company Number: US-009507513-1406USA012123

PATIENT
  Age: 8 Year
  Sex: Male
  Weight: 26.76 kg

DRUGS (1)
  1. CLARITIN [Suspect]
     Indication: SEASONAL ALLERGY
     Dosage: 20 MG, ONCE
     Route: 048
     Dates: start: 20140614

REACTIONS (2)
  - Accidental overdose [Unknown]
  - Off label use [Unknown]
